FAERS Safety Report 8823775 (Version 1)
Quarter: 2012Q4

REPORT INFORMATION
  Report Type: 
  Country: US (occurrence: US)
  Receive Date: 20121003
  Receipt Date: 20121003
  Transmission Date: 20130627
  Serious: No
  Sender: FDA-Public Use
  Company Number: US-BAYER-2012-103380

PATIENT
  Age: 36 Year
  Sex: Female
  Weight: 56.69 kg

DRUGS (4)
  1. BETASERON [Suspect]
     Dosage: 0.3 mg, QOD
     Route: 058
  2. MULTIVITAMIN [Concomitant]
     Route: 048
  3. VITAMIN D3 [Concomitant]
     Route: 048
  4. CLOBEX [Concomitant]
     Route: 061

REACTIONS (2)
  - Injection site haematoma [Unknown]
  - Injection site atrophy [Unknown]
